FAERS Safety Report 5286814-7 (Version None)
Quarter: 2007Q2

REPORT INFORMATION
  Report Type: 
  Country: None (occurrence: None)
  Receive Date: 20070404
  Receipt Date: 20070329
  Transmission Date: 20071010
  Serious: Yes (Life-Threatening)
  Sender: FDA-Public Use
  Company Number: CN-SHR-CN-2007-011120

PATIENT
  Age: 45 Year
  Sex: Male

DRUGS (2)
  1. ULTRAVIST 300 [Suspect]
     Indication: COMPUTERISED TOMOGRAM
     Dosage: 85 ML, 1 DOSE
     Route: 042
     Dates: start: 20070214, end: 20070214
  2. ULTRAVIST 300 [Suspect]
     Dosage: SMALL DOSE, 1 DOSE
     Dates: start: 20070214, end: 20070214

REACTIONS (5)
  - ASTHENIA [None]
  - BLOOD PRESSURE DECREASED [None]
  - LOSS OF CONSCIOUSNESS [None]
  - NAUSEA [None]
  - SHOCK [None]
